FAERS Safety Report 6458672-6 (Version None)
Quarter: 2009Q4

REPORT INFORMATION
  Report Type: 
  Country: None (occurrence: None)
  Receive Date: 20091120
  Receipt Date: 20091112
  Transmission Date: 20100525
  Serious: Yes (Other)
  Sender: FDA-Public Use
  Company Number: A20090705-004

PATIENT
  Age: 61 Year
  Sex: Female

DRUGS (4)
  1. PITAVASTATIN CALCIUM [Suspect]
     Indication: HYPERCHOLESTEROLAEMIA
     Dosage: 1 MG, PO
     Route: 048
     Dates: start: 20090706, end: 20090804
  2. FEXOFENADINE HCL [Suspect]
     Indication: RHINITIS ALLERGIC
     Dosage: 120MG, PO
     Route: 048
     Dates: start: 20090630, end: 20090804
  3. CARBOCISTEINE [Concomitant]
  4. CLOPERASTINE FENDIZOATE [Concomitant]

REACTIONS (8)
  - ALANINE AMINOTRANSFERASE INCREASED [None]
  - ALCOHOL USE [None]
  - ASPARTATE AMINOTRANSFERASE INCREASED [None]
  - BLOOD LACTATE DEHYDROGENASE INCREASED [None]
  - HEPATITIS C [None]
  - LIVER DISORDER [None]
  - LYMPHOCYTE STIMULATION TEST POSITIVE [None]
  - MALAISE [None]
